FAERS Safety Report 8896112 (Version 2)
Quarter: 2012Q4

REPORT INFORMATION
  Report Type: Report from Study
  Country: CA (occurrence: CA)
  Receive Date: 20121108
  Receipt Date: 20121127
  Transmission Date: 20130627
  Serious: Yes (Hospitalization)
  Sender: FDA-Public Use
  Company Number: CA-ABBOTT-12P-028-1003981-00

PATIENT
  Age: 56 Year
  Sex: Female
  Weight: 95.34 kg

DRUGS (11)
  1. HUMIRA PEN [Suspect]
     Indication: SERONEGATIVE ARTHRITIS
     Route: 058
     Dates: start: 20120117
  2. HUMALOG [Concomitant]
     Indication: TYPE 2 DIABETES MELLITUS
     Dosage: 4-10 units
     Route: 058
  3. LANTUS [Concomitant]
     Indication: TYPE 2 DIABETES MELLITUS
     Route: 058
  4. METFORMIN [Concomitant]
     Indication: TYPE 2 DIABETES MELLITUS
     Route: 048
  5. PREDNISONE [Concomitant]
     Indication: SERONEGATIVE ARTHRITIS
     Route: 048
  6. PREDNISONE [Concomitant]
     Indication: HIDRADENITIS
  7. ACTONEL [Concomitant]
     Indication: SERONEGATIVE ARTHRITIS
     Route: 048
  8. METHOTREXATE [Concomitant]
     Indication: SERONEGATIVE ARTHRITIS
     Route: 048
  9. FOLIC ACID [Concomitant]
     Indication: DRUG THERAPY
  10. ANTIDEPRESSANT NOT OTHERWISE SPECIFIED [Concomitant]
     Indication: DEPRESSION
  11. HERBALS [Concomitant]

REACTIONS (4)
  - Angina pectoris [Unknown]
  - Hidradenitis [Not Recovered/Not Resolved]
  - Furuncle [Not Recovered/Not Resolved]
  - Feeling abnormal [Not Recovered/Not Resolved]
